FAERS Safety Report 12633776 (Version 1)
Quarter: 2016Q3

REPORT INFORMATION
  Report Type: Spontaneous
  Country: JO (occurrence: JO)
  Receive Date: 20160809
  Receipt Date: 20160809
  Transmission Date: 20161109
  Serious: Yes (Other)
  Sender: FDA-Public Use
  Company Number: JO-PFIZER INC-2016358704

PATIENT
  Age: 56 Year
  Sex: Female

DRUGS (5)
  1. DOCETAXEL. [Suspect]
     Active Substance: DOCETAXEL
     Indication: BREAST CANCER
     Dosage: 60 MG, WEEKLY
     Route: 042
     Dates: start: 2016, end: 2016
  2. DECADRON [Concomitant]
     Active Substance: DEXAMETHASONE
     Dosage: 16 MG, DAY1,1,2
  3. ZOFRAN [Concomitant]
     Active Substance: ONDANSETRON HYDROCHLORIDE
     Dosage: 8 MG, DAY 1
     Route: 042
  4. ZOFRAN [Concomitant]
     Active Substance: ONDANSETRON HYDROCHLORIDE
     Dosage: 8 MG, DAY 2,3
  5. ZARZIO [Concomitant]
     Active Substance: FILGRASTIM
     Dosage: 300 , DAY 5,6,7
     Route: 058

REACTIONS (3)
  - Rash [Unknown]
  - Erythema [Unknown]
  - Ulcer [Unknown]

NARRATIVE: CASE EVENT DATE: 2016
